FAERS Safety Report 14774921 (Version 1)
Quarter: 2018Q2

REPORT INFORMATION
  Report Type: Spontaneous
  Country: DE (occurrence: DE)
  Receive Date: 20180418
  Receipt Date: 20180418
  Transmission Date: 20180711
  Serious: Yes (Hospitalization, Other)
  Sender: FDA-Public Use
  Company Number: DE-DRREDDYS-GER/GER/18/0097759

PATIENT
  Age: 92 Year
  Sex: Female

DRUGS (12)
  1. ATORVASTATIN [Concomitant]
     Active Substance: ATORVASTATIN
     Indication: PRODUCT USED FOR UNKNOWN INDICATION
     Route: 048
     Dates: start: 2014, end: 20170305
  2. ACETYLSALICYLSAEURE [Concomitant]
     Active Substance: ASPIRIN
     Indication: PRODUCT USED FOR UNKNOWN INDICATION
     Route: 048
     Dates: start: 2014, end: 20170305
  3. PIPAMPERON [Concomitant]
     Active Substance: PIPAMPERONE HYDROCHLORIDE
     Route: 048
     Dates: start: 20170305
  4. PIPAMPERON [Concomitant]
     Active Substance: PIPAMPERONE HYDROCHLORIDE
     Indication: PRODUCT USED FOR UNKNOWN INDICATION
     Route: 048
     Dates: start: 20170302, end: 20170303
  5. RAMIPRIL. [Suspect]
     Active Substance: RAMIPRIL
     Indication: PRODUCT USED FOR UNKNOWN INDICATION
     Dosage: APPLICATION FOR A LONG TIME
     Route: 048
     Dates: end: 20170305
  6. ACTRAPID [Concomitant]
     Active Substance: INSULIN HUMAN
     Indication: PRODUCT USED FOR UNKNOWN INDICATION
     Dosage: APPLICATION FOR A LONG TIME
     Route: 058
     Dates: end: 20170305
  7. METOPROLOL. [Suspect]
     Active Substance: METOPROLOL
     Indication: PRODUCT USED FOR UNKNOWN INDICATION
     Dosage: APPLICATION FOR A LONG TIME
     Route: 048
     Dates: end: 20170305
  8. DOMINAL (PROTHIPENDYL HYDROCHLORIDE) [Suspect]
     Active Substance: PROTHIPENDYL HYDROCHLORIDE
     Indication: PRODUCT USED FOR UNKNOWN INDICATION
     Route: 048
     Dates: start: 20170214, end: 20170305
  9. HCT [Suspect]
     Active Substance: HYDROCHLOROTHIAZIDE
     Indication: PRODUCT USED FOR UNKNOWN INDICATION
     Dosage: APPLICATION FOR A LONG TIME
     Route: 048
     Dates: end: 20170305
  10. LEVEMIR [Concomitant]
     Active Substance: INSULIN DETEMIR
     Indication: PRODUCT USED FOR UNKNOWN INDICATION
     Dosage: APPLICATION FOR A LONG TIME
     Route: 058
     Dates: end: 20170305
  11. RISPERIDON [Suspect]
     Active Substance: RISPERIDONE
     Indication: PRODUCT USED FOR UNKNOWN INDICATION
     Route: 048
     Dates: start: 20170303, end: 20170305
  12. AMLODIPIN [Suspect]
     Active Substance: AMLODIPINE BESYLATE
     Indication: PRODUCT USED FOR UNKNOWN INDICATION
     Dosage: APPLICATION FOR A LONG TIME
     Route: 048
     Dates: end: 20170305

REACTIONS (2)
  - Myocardial infarction [Unknown]
  - Altered state of consciousness [Unknown]

NARRATIVE: CASE EVENT DATE: 20170306
